FAERS Safety Report 25951871 (Version 1)
Quarter: 2025Q4

REPORT INFORMATION
  Report Type: Spontaneous
  Country: EU (occurrence: EU)
  Receive Date: 20251023
  Receipt Date: 20251023
  Transmission Date: 20260119
  Serious: Yes (Other)
  Sender: AUROBINDO
  Company Number: EU-INFARMED-J202509-800

PATIENT
  Age: 51 Year
  Sex: Female

DRUGS (1)
  1. AMOXICILLIN\CLAVULANIC ACID [Suspect]
     Active Substance: AMOXICILLIN\CLAVULANIC ACID
     Indication: Infection
     Dosage: 1 ARBITRARY UNITS, TWO TIMES A DAY
     Route: 048
     Dates: start: 20250924, end: 20250924

REACTIONS (3)
  - Diarrhoea [Recovered/Resolved]
  - Vomiting [Recovered/Resolved]
  - Accidental overdose [Recovered/Resolved]

NARRATIVE: CASE EVENT DATE: 20250924
